FAERS Safety Report 6119807-8 (Version None)
Quarter: 2009Q1

REPORT INFORMATION
  Report Type: 
  Country: None (occurrence: None)
  Receive Date: 20090316
  Receipt Date: 20090313
  Transmission Date: 20090719
  Serious: Yes (Other)
  Sender: FDA-Public Use
  Company Number: US-ASTRAZENECA-2008UW18968

PATIENT
  Age: 18919 Day
  Sex: Female
  Weight: 78.9 kg

DRUGS (19)
  1. SEROQUEL [Suspect]
     Indication: BIPOLAR DISORDER
     Dosage: 100-300MG
     Route: 048
     Dates: start: 20030318, end: 20050501
  2. SEROQUEL [Suspect]
     Dosage: 150-300MG
     Route: 048
     Dates: start: 20050701, end: 20061101
  3. SEROQUEL [Suspect]
     Dosage: 100-300MG
     Route: 048
     Dates: start: 20061101, end: 20071001
  4. SEROQUEL [Suspect]
     Route: 048
     Dates: start: 20071001, end: 20071201
  5. SEROQUEL [Suspect]
     Dosage: 100-300MG
     Route: 048
     Dates: start: 20080101, end: 20080401
  6. GEODON [Concomitant]
     Dates: start: 20080501
  7. NAVANE [Concomitant]
     Dates: start: 20080301, end: 20080601
  8. RISPERDAL [Concomitant]
     Dates: start: 20050401, end: 20060101
  9. RISPERDAL [Concomitant]
     Dates: start: 20070301, end: 20070401
  10. ZYPREXA [Concomitant]
     Dates: start: 20030201, end: 20031001
  11. DEPAKOTE [Concomitant]
  12. EFFEXOR [Concomitant]
  13. HALDOL [Concomitant]
     Dates: start: 20061201, end: 20070101
  14. BENZOTROPINE [Concomitant]
     Dates: start: 20070101
  15. CITALOPRAM HYDROBROMIDE [Concomitant]
     Dates: start: 20050701, end: 20070101
  16. LEXAPRO [Concomitant]
     Dates: start: 20031201, end: 20050301
  17. LITHIUM CARBONATE [Concomitant]
     Dates: start: 20050501, end: 20060801
  18. TEGRETOL [Concomitant]
     Dates: start: 20050501, end: 20060801
  19. CYMBALTA [Concomitant]
     Dates: start: 20050501, end: 20051101

REACTIONS (7)
  - AMNESIA [None]
  - BALANCE DISORDER [None]
  - BLOOD CHOLESTEROL INCREASED [None]
  - DEBRIDEMENT [None]
  - DIABETES MELLITUS [None]
  - FOOT FRACTURE [None]
  - OVERDOSE [None]
